FAERS Safety Report 5035501-9 (Version None)
Quarter: 2006Q2

REPORT INFORMATION
  Report Type: 
  Country: None (occurrence: None)
  Receive Date: 20060525
  Receipt Date: 20060410
  Transmission Date: 20061013
  Serious: No
  Sender: FDA-Public Use
  Company Number: S06-USA-01416-01

PATIENT
  Age: 28 Year
  Sex: Male

DRUGS (4)
  1. CAMPRAL [Suspect]
     Indication: ALCOHOLISM
     Dosage: 333 MG TID PO
     Route: 048
     Dates: start: 20060403, end: 20060409
  2. CAMPRAL [Suspect]
     Indication: ALCOHOLISM
     Dosage: 666 MG TID PO
     Route: 048
     Dates: start: 20060410
  3. CREATINE SUPPLEMENT [Concomitant]
  4. MULTI-VITAMIN [Concomitant]

REACTIONS (1)
  - MUSCULAR WEAKNESS [None]
